FAERS Safety Report 13015726 (Version 3)
Quarter: 2017Q1

REPORT INFORMATION
  Report Type: Spontaneous
  Country: IT (occurrence: IT)
  Receive Date: 20161212
  Receipt Date: 20170214
  Transmission Date: 20170428
  Serious: Yes (Other)
  Sender: FDA-Public Use
  Company Number: IT-ROCHE-1866084

PATIENT
  Age: 67 Year
  Sex: Male

DRUGS (14)
  1. LANSOX [Concomitant]
     Active Substance: LANSOPRAZOLE
  2. NORVASC [Concomitant]
     Active Substance: AMLODIPINE BESYLATE
  3. EFFENTORA [Concomitant]
     Active Substance: FENTANYL CITRATE
  4. OXALIPLATIN. [Suspect]
     Active Substance: OXALIPLATIN
     Indication: GASTRIC CANCER
     Dosage: DATE OF LAST DOSE PRIOR TO EVENT- 11/MAY/2015
     Route: 042
     Dates: start: 20150420
  5. CARDIOASPIRIN [Concomitant]
     Active Substance: ASPIRIN
  6. TARGIN [Concomitant]
     Active Substance: NALOXONE HYDROCHLORIDE\OXYCODONE HYDROCHLORIDE
  7. UNIPRIL (ITALY) [Concomitant]
  8. SOLOSA [Concomitant]
     Active Substance: GLIMEPIRIDE
  9. ATENOLOL. [Concomitant]
     Active Substance: ATENOLOL
  10. BYETTA [Concomitant]
     Active Substance: EXENATIDE
  11. XELODA [Suspect]
     Active Substance: CAPECITABINE
     Indication: GASTRIC CANCER
     Dosage: DATE OF LAST DOSE PRIOR TO EVENT- 11/MAY/2015
     Route: 048
     Dates: start: 20150420
  12. TORVAST [Concomitant]
     Active Substance: ATORVASTATIN
  13. GLUCOPHAGE [Concomitant]
     Active Substance: METFORMIN HYDROCHLORIDE
  14. BRILIQUE [Concomitant]
     Active Substance: TICAGRELOR

REACTIONS (2)
  - Diarrhoea [Unknown]
  - Renal failure [Unknown]

NARRATIVE: CASE EVENT DATE: 20150518
